FAERS Safety Report 4373867-3 (Version None)
Quarter: 2004Q2

REPORT INFORMATION
  Report Type: 
  Country: None (occurrence: None)
  Receive Date: 20040609
  Receipt Date: 20040601
  Transmission Date: 20050107
  Serious: Yes (Death, Life-Threatening, Hospitalization, Disabling)
  Sender: FDA-Public Use
  Company Number: AT-JNJFOC-20040600020

PATIENT
  Age: 58 Year
  Sex: Male
  Weight: 64 kg

DRUGS (8)
  1. REMICADE [Suspect]
     Dosage: ONLY 2 REMICADE INFUSIONS ADMINISTERED.
     Route: 042
  2. OMEPRAZOLE [Concomitant]
     Route: 049
     Dates: start: 20030610, end: 20030707
  3. WARFARIN SODIUM [Concomitant]
     Indication: ANTICOAGULANT THERAPY
     Dosage: 1/4 TABLET 3X DAILY.
     Route: 049
     Dates: start: 20020101, end: 20030707
  4. AMITRIPTYLIN [Concomitant]
     Indication: PAIN
     Route: 049
     Dates: start: 20030617, end: 20030707
  5. GABAPENTIN [Concomitant]
     Indication: PAIN
     Route: 049
     Dates: start: 20030615, end: 20030707
  6. DEXIBUPROFEN [Concomitant]
     Indication: PAIN
     Route: 049
     Dates: start: 20030610, end: 20030707
  7. PREDNISOLONE [Concomitant]
     Route: 049
     Dates: start: 20030110, end: 20030623
  8. TRAMADOL HCL [Concomitant]
     Indication: PAIN
     Route: 049
     Dates: start: 20030704, end: 20030707

REACTIONS (3)
  - ACUTE RESPIRATORY DISTRESS SYNDROME [None]
  - MULTI-ORGAN FAILURE [None]
  - PNEUMONIA LEGIONELLA [None]
